FAERS Safety Report 4478951-1 (Version None)
Quarter: 2004Q4

REPORT INFORMATION
  Report Type: 
  Country: None (occurrence: None)
  Receive Date: 20041014
  Receipt Date: 20040928
  Transmission Date: 20050328
  Serious: Yes (Other)
  Sender: FDA-Public Use
  Company Number: 2004236008TW

PATIENT
  Age: 64 Year
  Sex: Male

DRUGS (2)
  1. CORTEF [Suspect]
     Indication: HYPOTHALAMO-PITUITARY DISORDERS
     Dosage: 100 MG, TID EVERY 8 HOURS
  2. THYROXIN (LEVOTHYROXINE SODIUM) [Concomitant]

REACTIONS (1)
  - DIABETES INSIPIDUS [None]
